FAERS Safety Report 7704743-3 (Version None)
Quarter: 2011Q3

REPORT INFORMATION
  Report Type: 
  Country: None (occurrence: None)
  Receive Date: 20110823
  Receipt Date: 20110815
  Transmission Date: 20111222
  Serious: Yes (Hospitalization, Other)
  Sender: FDA-Public Use
  Company Number: PHHY2011DK73672

PATIENT
  Sex: Male
  Weight: 85 kg

DRUGS (5)
  1. COZAAR [Concomitant]
  2. METOPROLOL SUCCINATE [Concomitant]
  3. ASPIRIN [Concomitant]
  4. DICLOXACILLIN [Suspect]
     Indication: ABSCESS LIMB
     Dosage: 1000 MG, UNK
     Dates: start: 20091226, end: 20100102
  5. ATORVASTATIN CALCIUM [Concomitant]

REACTIONS (2)
  - TOXICITY TO VARIOUS AGENTS [None]
  - RENAL FAILURE [None]
